FAERS Safety Report 17093692 (Version 1)
Quarter: 2019Q4

REPORT INFORMATION
  Report Type: Spontaneous
  Country: US (occurrence: US)
  Receive Date: 20191129
  Receipt Date: 20191129
  Transmission Date: 20200122
  Serious: Yes (Other)
  Sender: FDA-Public Use
  Company Number: US-ASTRAZENECA-2019SF69706

PATIENT
  Age: 14631 Day
  Sex: Female

DRUGS (9)
  1. NEXIUM [Suspect]
     Active Substance: ESOMEPRAZOLE MAGNESIUM
     Indication: GASTROOESOPHAGEAL REFLUX DISEASE
     Dosage: 40.0MG UNKNOWN
     Route: 048
     Dates: start: 2009
  2. NEXIUM 24HR [Suspect]
     Active Substance: ESOMEPRAZOLE MAGNESIUM
     Route: 048
  3. PEPCID [Concomitant]
     Active Substance: FAMOTIDINE
  4. PRILOSEC [Concomitant]
     Active Substance: OMEPRAZOLE MAGNESIUM
  5. ZANTAC [Concomitant]
     Active Substance: RANITIDINE HYDROCHLORIDE
  6. ACIPHEX [Concomitant]
     Active Substance: RABEPRAZOLE SODIUM
  7. PROTONIX [Concomitant]
     Active Substance: PANTOPRAZOLE SODIUM
  8. PREVACID [Concomitant]
     Active Substance: LANSOPRAZOLE
  9. PEPCID AC [Concomitant]
     Active Substance: FAMOTIDINE

REACTIONS (22)
  - Hand fracture [Unknown]
  - Foot fracture [Unknown]
  - Neck injury [Unknown]
  - Head injury [Unknown]
  - Skin laceration [Unknown]
  - Joint injury [Unknown]
  - Skull fracture [Unknown]
  - Nasal injury [Unknown]
  - Carpal tunnel syndrome [Unknown]
  - Lymphoedema [Unknown]
  - Ligament rupture [Unknown]
  - Movement disorder [Unknown]
  - Tendon rupture [Unknown]
  - Road traffic accident [Unknown]
  - Back injury [Unknown]
  - Migraine [Unknown]
  - Headache [Unknown]
  - Pupillary disorder [Unknown]
  - Fall [Unknown]
  - Ligament sprain [Unknown]
  - Arthralgia [Unknown]
  - Limb discomfort [Unknown]

NARRATIVE: CASE EVENT DATE: 20120502
